FAERS Safety Report 6399491-9 (Version None)
Quarter: 2009Q4

REPORT INFORMATION
  Report Type: 
  Country: None (occurrence: None)
  Receive Date: 20091008
  Receipt Date: 20091008
  Transmission Date: 20100525
  Serious: Yes (Other)
  Sender: FDA-Public Use
  Company Number: None

PATIENT
  Age: 45 Year
  Sex: Male
  Weight: 80.9 kg

DRUGS (1)
  1. VIREAD [Suspect]
     Indication: HIV INFECTION
     Dosage: 300MG 1 DAY; WITH A 6MONTH BREAK
     Dates: start: 20050101, end: 20090901

REACTIONS (5)
  - ARTHRALGIA [None]
  - DEHYDRATION [None]
  - JOINT STIFFNESS [None]
  - MOBILITY DECREASED [None]
  - PALPITATIONS [None]
